FAERS Safety Report 23398391 (Version 1)
Quarter: 2024Q1

REPORT INFORMATION
  Report Type: Spontaneous
  Country: CA (occurrence: CA)
  Receive Date: 20240112
  Receipt Date: 20240112
  Transmission Date: 20240409
  Serious: Yes (Hospitalization, Other)
  Sender: FDA-Public Use
  Company Number: CA-PFIZER INC-PV202400004158

PATIENT
  Age: 71 Year
  Sex: Female
  Weight: 77 kg

DRUGS (41)
  1. KETOROLAC TROMETHAMINE [Suspect]
     Active Substance: KETOROLAC TROMETHAMINE
     Indication: Product used for unknown indication
     Dosage: UNK
  2. ERYTHROMYCIN [Suspect]
     Active Substance: ERYTHROMYCIN
     Indication: Product used for unknown indication
     Dosage: UNK
  3. RITUXIMAB [Suspect]
     Active Substance: RITUXIMAB
     Indication: Ocular pemphigoid
     Dosage: 1000 MG (EVERY 15 DAYS)
     Route: 042
  4. ARAVA [Suspect]
     Active Substance: LEFLUNOMIDE
     Indication: Pemphigoid
     Dosage: UNK
     Route: 042
  5. FUSIDIC ACID [Suspect]
     Active Substance: FUSIDIC ACID
     Indication: Product used for unknown indication
     Dosage: UNK
  6. AMPICILLIN [Suspect]
     Active Substance: AMPICILLIN
     Indication: Product used for unknown indication
     Dosage: UNK
  7. MYDRIACYL [Suspect]
     Active Substance: TROPICAMIDE
     Indication: Product used for unknown indication
     Dosage: UNK
     Route: 047
  8. SPIRONOLACTONE [Suspect]
     Active Substance: SPIRONOLACTONE
     Indication: Blood pressure measurement
     Dosage: 100 MG
  9. PREDNISONE [Concomitant]
     Active Substance: PREDNISONE
     Indication: Product used for unknown indication
     Dosage: UNK
  10. ACETAMINOPHEN [Concomitant]
     Active Substance: ACETAMINOPHEN
     Indication: Product used for unknown indication
     Dosage: UNK
  11. ASPIRIN [Concomitant]
     Active Substance: ASPIRIN
     Indication: Product used for unknown indication
     Dosage: UNK
  12. ALBUMIN HUMAN [Concomitant]
     Active Substance: ALBUMIN HUMAN
     Indication: Product used for unknown indication
     Dosage: UNK
  13. COD LIVER OIL [Concomitant]
     Active Substance: COD LIVER OIL
     Indication: Product used for unknown indication
     Dosage: UNK
  14. LEVOTHYROXINE [Concomitant]
     Active Substance: LEVOTHYROXINE
     Indication: Hyperthyroidism
     Dosage: UNK
  15. HYDRALAZINE [HYDRALAZINE HYDROCHLORIDE] [Concomitant]
     Indication: Hypertension
     Dosage: UNK
  16. LIPITOR [Concomitant]
     Active Substance: ATORVASTATIN CALCIUM
     Indication: Hypothyroidism
     Dosage: UNK
     Route: 042
  17. LYRICA [Concomitant]
     Active Substance: PREGABALIN
     Indication: Hypertension
     Dosage: UNK
     Route: 042
  18. MAGNESIUM [Concomitant]
     Active Substance: MAGNESIUM
     Indication: Product used for unknown indication
     Dosage: UNK
  19. SOLU-MEDROL [Concomitant]
     Active Substance: METHYLPREDNISOLONE SODIUM SUCCINATE
     Indication: Product used for unknown indication
     Dosage: 100 MG
     Route: 048
  20. MINOCYCLINE [MINOCYCLINE HYDROCHLORIDE] [Concomitant]
     Indication: Product used for unknown indication
     Dosage: 100 MG
     Route: 048
  21. PANTOPRAZOLE [Concomitant]
     Active Substance: PANTOPRAZOLE
     Indication: Product used for unknown indication
     Dosage: UNK
  22. PROLIA [Concomitant]
     Active Substance: DENOSUMAB
     Indication: Premedication
     Dosage: UNK
  23. SYNTHROID [Concomitant]
     Active Substance: LEVOTHYROXINE SODIUM
     Indication: Product used for unknown indication
     Dosage: UNK
  24. TACROLIMUS [Concomitant]
     Active Substance: TACROLIMUS
     Indication: Product used for unknown indication
     Dosage: UNK
  25. PANTOPRAZOLE SODIUM [Concomitant]
     Active Substance: PANTOPRAZOLE SODIUM
     Indication: Blood pressure measurement
     Dosage: UNK
  26. AMOXICILLIN\CLAVULANATE POTASSIUM [Concomitant]
     Active Substance: AMOXICILLIN\CLAVULANATE POTASSIUM
     Indication: Product used for unknown indication
     Dosage: UNK
  27. BENADRYL [Concomitant]
     Active Substance: DIPHENHYDRAMINE HYDROCHLORIDE
     Indication: Product used for unknown indication
     Dosage: UNK
  28. CRANBERRY [Concomitant]
     Active Substance: CRANBERRY
     Indication: Product used for unknown indication
     Dosage: 100 MG, QD (ONCE DAILY)
     Route: 048
  29. FUSIDIC ACID [Concomitant]
     Active Substance: FUSIDIC ACID
     Indication: Product used for unknown indication
     Dosage: 100 MG
     Route: 042
  30. TYLENOL [Concomitant]
     Active Substance: ACETAMINOPHEN
     Indication: Premedication
     Dosage: UNK
  31. ALISKIREN HEMIFUMARATE [Concomitant]
     Active Substance: ALISKIREN HEMIFUMARATE
     Indication: Product used for unknown indication
     Dosage: UNK
  32. MYCOPHENOLATE SODIUM [Concomitant]
     Active Substance: MYCOPHENOLATE SODIUM
     Indication: Product used for unknown indication
     Dosage: UNK
     Route: 058
  33. CARBOXYMETHYLCELLULOSE SODIUM [Concomitant]
     Active Substance: CARBOXYMETHYLCELLULOSE SODIUM
     Indication: Product used for unknown indication
     Dosage: UNK, 1 EVERY 6 MONTHS
     Route: 058
  34. SULFASALAZINE [Concomitant]
     Active Substance: SULFASALAZINE
     Indication: Product used for unknown indication
     Dosage: UNK
  35. PANTOPRAZOLE MAGNESIUM [Concomitant]
     Active Substance: PANTOPRAZOLE MAGNESIUM
     Indication: Premedication
     Dosage: UNK
  36. DIPHENHYDRAMINE HYDROCHLORIDE [Concomitant]
     Active Substance: DIPHENHYDRAMINE HYDROCHLORIDE
     Dosage: UNK
  37. CRANBERRY [Concomitant]
     Active Substance: CRANBERRY
     Dosage: UNK
  38. CRANBERRY [Concomitant]
     Active Substance: CRANBERRY
     Dosage: UNK
  39. VACCINIUM SPP. FRUIT [Concomitant]
     Dosage: UNK
  40. FUSIDATE SODIUM [Concomitant]
     Active Substance: FUSIDATE SODIUM
     Dosage: UNK
  41. PANTOPRAZOLE HEMIMAGNESIUM HYDRATE [Concomitant]
     Dosage: UNK

REACTIONS (43)
  - Diarrhoea [Recovered/Resolved]
  - Fall [Recovered/Resolved]
  - Fatigue [Recovered/Resolved]
  - Abdominal pain lower [Recovered/Resolved]
  - Balance disorder [Recovered/Resolved]
  - Catheter site abscess [Recovered/Resolved]
  - Chest injury [Recovered/Resolved]
  - Dehydration [Recovered/Resolved]
  - Gallbladder disorder [Recovered/Resolved]
  - Nausea [Recovered/Resolved]
  - Pancreatic cyst [Recovered/Resolved]
  - Pancreatic pseudocyst [Recovered/Resolved]
  - Pancreatitis [Recovered/Resolved]
  - Periumbilical abscess [Recovered/Resolved]
  - Poor quality sleep [Recovered/Resolved]
  - Retching [Recovered/Resolved]
  - Eye disorder [Recovered/Resolved]
  - Gait disturbance [Recovered/Resolved]
  - COVID-19 [Recovered/Resolved]
  - Decreased appetite [Recovered/Resolved]
  - Weight decreased [Recovered/Resolved]
  - Vaginal lesion [Recovered/Resolved]
  - Conjunctival hyperaemia [Recovered/Resolved]
  - Weight increased [Recovered/Resolved]
  - Pancreatitis relapsing [Recovered/Resolved]
  - Insomnia [Recovered/Resolved]
  - Pancreatitis chronic [Recovered/Resolved]
  - Lung neoplasm malignant [Recovered/Resolved]
  - Symblepharon [Recovered/Resolved]
  - Off label use [Recovered/Resolved]
  - Drug ineffective [Not Recovered/Not Resolved]
  - SARS-CoV-2 test positive [Not Recovered/Not Resolved]
  - Chest pain [Not Recovered/Not Resolved]
  - Contusion [Not Recovered/Not Resolved]
  - Drug hypersensitivity [Not Recovered/Not Resolved]
  - Cough [Not Recovered/Not Resolved]
  - Dyspnoea [Not Recovered/Not Resolved]
  - Exposure to SARS-CoV-2 [Not Recovered/Not Resolved]
  - Eye inflammation [Not Recovered/Not Resolved]
  - Infection [Not Recovered/Not Resolved]
  - Monocytosis [Not Recovered/Not Resolved]
  - Pneumonia [Not Recovered/Not Resolved]
  - Ulcerative keratitis [Not Recovered/Not Resolved]
